FAERS Safety Report 18573640 (Version 6)
Quarter: 2021Q4

REPORT INFORMATION
  Report Type: Spontaneous
  Country: HU (occurrence: HU)
  Receive Date: 20201203
  Receipt Date: 20211223
  Transmission Date: 20220304
  Serious: Yes (Death, Other)
  Sender: FDA-Public Use
  Company Number: None

PATIENT
  Age: 62 Year
  Sex: Male

DRUGS (16)
  1. MOMETASONE [Suspect]
     Active Substance: MOMETASONE
     Indication: Cutaneous T-cell lymphoma
     Dosage: UNK
     Route: 061
     Dates: start: 2019
  2. MOMETASONE [Suspect]
     Active Substance: MOMETASONE
     Indication: Steroid therapy
  3. MIRTAZAPINE [Suspect]
     Active Substance: MIRTAZAPINE
     Indication: Pruritus
     Dosage: UNK
     Route: 065
     Dates: start: 201910
  4. CETIRIZINE [Suspect]
     Active Substance: CETIRIZINE HYDROCHLORIDE
     Indication: Pruritus
     Dosage: UNK
     Route: 065
     Dates: start: 2019
  5. CETIRIZINE [Suspect]
     Active Substance: CETIRIZINE HYDROCHLORIDE
     Indication: Cutaneous T-cell lymphoma
  6. BRENTUXIMAB [Suspect]
     Active Substance: BRENTUXIMAB
     Indication: Pruritus
     Dosage: UNK
     Route: 065
  7. METHYLPREDNISOLONE ACEPONATE [Suspect]
     Active Substance: METHYLPREDNISOLONE ACEPONATE
     Indication: Steroid therapy
     Dosage: UNK
     Route: 061
     Dates: start: 2019
  8. METHYLPREDNISOLONE ACEPONATE [Suspect]
     Active Substance: METHYLPREDNISOLONE ACEPONATE
     Indication: Cutaneous T-cell lymphoma
  9. CLOBETASOL PROPIONATE [Suspect]
     Active Substance: CLOBETASOL PROPIONATE
     Indication: Steroid therapy
     Dosage: UNK
     Route: 061
     Dates: start: 2019
  10. CLOBETASOL PROPIONATE [Suspect]
     Active Substance: CLOBETASOL PROPIONATE
     Indication: Cutaneous T-cell lymphoma
  11. INTERFERON ALFA-2B [Suspect]
     Active Substance: INTERFERON ALFA-2B
     Indication: Pruritus
     Dosage: (3X3 MU), TWO INJECTIONS
     Route: 058
     Dates: start: 201909
  12. HYDROXYZINE [Suspect]
     Active Substance: HYDROXYZINE HYDROCHLORIDE
     Indication: Pruritus
     Dosage: UNK
     Route: 065
     Dates: start: 2019
  13. HYDROXYZINE [Suspect]
     Active Substance: HYDROXYZINE HYDROCHLORIDE
     Indication: Cutaneous T-cell lymphoma
  14. PSORALEN [Suspect]
     Active Substance: PSORALEN
     Indication: Cutaneous T-cell lymphoma
     Dosage: UNK
     Route: 065
     Dates: start: 2019
  15. BILASTINE [Suspect]
     Active Substance: BILASTINE
     Indication: Pruritus
     Dosage: UNK
     Route: 065
     Dates: start: 2019
  16. BILASTINE [Suspect]
     Active Substance: BILASTINE
     Indication: Cutaneous T-cell lymphoma

REACTIONS (5)
  - Acute myocardial infarction [Fatal]
  - Product use in unapproved indication [Fatal]
  - Somnolence [Unknown]
  - Off label use [Unknown]
  - Drug ineffective [Unknown]

NARRATIVE: CASE EVENT DATE: 20190101
